FAERS Safety Report 22524593 (Version 1)
Quarter: 2023Q2

REPORT INFORMATION
  Report Type: Spontaneous
  Country: US (occurrence: None)
  Receive Date: 20230606
  Receipt Date: 20230606
  Transmission Date: 20230722
  Serious: Yes (Hospitalization, Other)
  Sender: FDA-Public Use
  Company Number: US-ROCHE-3360912

PATIENT
  Sex: Female

DRUGS (1)
  1. RITUXAN [Suspect]
     Active Substance: RITUXIMAB
     Indication: B-cell lymphoma
     Dosage: RECEIVED 157 ML, OUT OF 500 ML BAG, AND BY 2 PM
     Route: 042
     Dates: start: 20230522

REACTIONS (4)
  - Abdominal pain [Not Recovered/Not Resolved]
  - B-cell lymphoma recurrent [Not Recovered/Not Resolved]
  - Swelling [Not Recovered/Not Resolved]
  - Gastrointestinal obstruction [Not Recovered/Not Resolved]

NARRATIVE: CASE EVENT DATE: 20230522
